FAERS Safety Report 25483106 (Version 1)
Quarter: 2025Q2

REPORT INFORMATION
  Report Type: Spontaneous
  Country: JP (occurrence: JP)
  Receive Date: 20250626
  Receipt Date: 20250626
  Transmission Date: 20250716
  Serious: Yes (Life-Threatening, Hospitalization, Other)
  Sender: EMD SERONO INC
  Company Number: JP-Merck Healthcare KGaA-2025031102

PATIENT
  Age: 74 Year
  Sex: Female
  Weight: 46 kg

DRUGS (8)
  1. METGLUCO [Suspect]
     Active Substance: METFORMIN HYDROCHLORIDE
     Indication: Type 1 diabetes mellitus
  2. AMLODIPINE BESYLATE [Suspect]
     Active Substance: AMLODIPINE BESYLATE
     Indication: Product used for unknown indication
  3. PITAVASTATIN CALCIUM [Suspect]
     Active Substance: PITAVASTATIN CALCIUM
     Indication: Product used for unknown indication
  4. INSULIN GLARGINE [Suspect]
     Active Substance: INSULIN GLARGINE
     Indication: Type 1 diabetes mellitus
  5. AZILSARTAN KAMEDOXOMIL [Suspect]
     Active Substance: AZILSARTAN KAMEDOXOMIL
     Indication: Product used for unknown indication
  6. ZOLPIDEM TARTRATE [Suspect]
     Active Substance: ZOLPIDEM TARTRATE
     Indication: Product used for unknown indication
  7. DAYVIGO [Suspect]
     Active Substance: LEMBOREXANT
     Indication: Product used for unknown indication
  8. APIDRA [Suspect]
     Active Substance: INSULIN GLULISINE
     Indication: Type 1 diabetes mellitus

REACTIONS (20)
  - Diabetic ketoacidosis [Unknown]
  - Hypothermia [Unknown]
  - Rhabdomyolysis [Unknown]
  - Procalcitonin increased [Unknown]
  - Blood creatinine increased [Recovered/Resolved]
  - Glomerular filtration rate decreased [Recovering/Resolving]
  - Blood creatine phosphokinase increased [Unknown]
  - Troponin T increased [Unknown]
  - Atrioventricular block first degree [Unknown]
  - Jugular vein thrombosis [Recovering/Resolving]
  - Transient ischaemic attack [Unknown]
  - Aspartate aminotransferase increased [Unknown]
  - Blood lactic acid increased [Unknown]
  - Hypotension [Recovering/Resolving]
  - White blood cell count increased [Unknown]
  - Blood urea increased [Unknown]
  - Cognitive disorder [Unknown]
  - Alanine aminotransferase increased [Unknown]
  - Diarrhoea [Unknown]
  - Off label use [Unknown]
